FAERS Safety Report 6887452-2 (Version None)
Quarter: 2010Q3

REPORT INFORMATION
  Report Type: 
  Country: None (occurrence: None)
  Receive Date: 20100728
  Receipt Date: 20100713
  Transmission Date: 20110219
  Serious: Yes (Death, Hospitalization)
  Sender: FDA-Public Use
  Company Number: 2010002737

PATIENT
  Age: 72 Year
  Sex: Male
  Weight: 52.25 kg

DRUGS (8)
  1. ERLOTINIB HYDROCHLORIDE [Suspect]
     Indication: LUNG ADENOCARCINOMA
     Dosage: (150 MG, QD), ORAL
     Route: 048
     Dates: start: 20080918, end: 20090128
  2. OXYCONTIN [Concomitant]
  3. NOVAMIN (PROCHLORPERAZINE) [Concomitant]
  4. SENNOSIDE [Concomitant]
  5. OXINORM (ORGOTEIN) [Concomitant]
  6. LOXONIN (LOXOPROFEN SODIUM) [Concomitant]
  7. SELBEX (TEPRENONE) [Concomitant]
  8. MOBIC [Concomitant]

REACTIONS (9)
  - ANAEMIA [None]
  - CARDIO-RESPIRATORY ARREST [None]
  - DUODENAL ULCER HAEMORRHAGE [None]
  - FALL [None]
  - HYPOAESTHESIA [None]
  - LIVER FUNCTION TEST ABNORMAL [None]
  - MULTI-ORGAN FAILURE [None]
  - PAIN IN EXTREMITY [None]
  - SHOCK [None]
